FAERS Safety Report 8041364-X (Version None)
Quarter: 2012Q1

REPORT INFORMATION
  Report Type: 
  Country: None (occurrence: None)
  Receive Date: 20120112
  Receipt Date: 20120104
  Transmission Date: 20120608
  Serious: Yes (Hospitalization)
  Sender: FDA-Public Use
  Company Number: US-BAYER-2012-002248

PATIENT
  Age: 33 Year
  Sex: Female
  Weight: 147.39 kg

DRUGS (5)
  1. ALDOMET [Concomitant]
     Dosage: 250 MG, UNK
  2. YAZ [Suspect]
     Indication: CONTRACEPTION
     Dosage: UNK
     Route: 048
     Dates: start: 20090701, end: 20090901
  3. ZYRTEC [Concomitant]
     Indication: MULTIPLE ALLERGIES
     Dosage: UNK
     Dates: start: 19990101
  4. MONOPRIL [Concomitant]
     Dosage: UNK
     Dates: start: 20090818
  5. METHYLDOPA [Concomitant]
     Indication: HYPERTENSION
     Dosage: UNK
     Dates: start: 20080101, end: 20090101

REACTIONS (5)
  - VENOUS VALVE RUPTURED [None]
  - DYSPNOEA [None]
  - THROMBOSIS [None]
  - PAIN IN EXTREMITY [None]
  - PULMONARY EMBOLISM [None]
